FAERS Safety Report 5220814-8 (Version None)
Quarter: 2007Q1

REPORT INFORMATION
  Report Type: 
  Country: None (occurrence: None)
  Receive Date: 20070123
  Receipt Date: 20070111
  Transmission Date: 20070707
  Serious: Yes (Death, Other)
  Sender: FDA-Public Use
  Company Number: 15508

PATIENT
  Age: 4 Year
  Sex: Female

DRUGS (12)
  1. DACARBAZINE [Suspect]
     Indication: ABDOMINAL NEOPLASM
     Dosage: 750 MG/M2 PER_CYCLE
  2. DACARBAZINE [Suspect]
     Indication: BONE MARROW TUMOUR CELL INFILTRATION
     Dosage: 750 MG/M2 PER_CYCLE
  3. DACARBAZINE [Suspect]
     Indication: NEUROBLASTOMA RECURRENT
     Dosage: 750 MG/M2 PER_CYCLE
  4. ADRIAMYCIN PFS [Suspect]
     Indication: ABDOMINAL NEOPLASM
     Dosage: 25 MG/M2 QD
  5. ADRIAMYCIN PFS [Suspect]
     Indication: BONE MARROW TUMOUR CELL INFILTRATION
     Dosage: 25 MG/M2 QD
  6. ADRIAMYCIN PFS [Suspect]
     Indication: NEUROBLASTOMA RECURRENT
     Dosage: 25 MG/M2 QD
  7. CYCLOPHOSPHAMIDE [Suspect]
     Indication: ABDOMINAL NEOPLASM
     Dosage: 750 MG/M2 PER_CYCLE
  8. CYCLOPHOSPHAMIDE [Suspect]
     Indication: BONE MARROW TUMOUR CELL INFILTRATION
     Dosage: 750 MG/M2 PER_CYCLE
  9. CYCLOPHOSPHAMIDE [Suspect]
     Indication: NEUROBLASTOMA RECURRENT
     Dosage: 750 MG/M2 PER_CYCLE
  10. DIAMMINE DICHLORO CISPLATIN [Suspect]
     Dosage: 45 MG/M2 PER_CYCLE
  11. MUSTINE [Suspect]
     Dosage: 2 MG/M2 PER_CYCLE
  12. ONCOVIN [Suspect]
     Dosage: 2 MG/M2 PER_CYCLE

REACTIONS (1)
  - ACUTE MYELOID LEUKAEMIA [None]
